FAERS Safety Report 10865660 (Version 6)
Quarter: 2015Q4

REPORT INFORMATION
  Report Type: Spontaneous
  Country: US (occurrence: US)
  Receive Date: 20150224
  Receipt Date: 20151019
  Transmission Date: 20160304
  Serious: No
  Sender: FDA-Public Use
  Company Number: US-GLAXOSMITHKLINE-US2015008101

PATIENT
  Age: 80 Year
  Sex: Female

DRUGS (5)
  1. POTASSIUM CITRATE. [Concomitant]
     Active Substance: POTASSIUM CITRATE
  2. ASPIRIN (BABY) [Concomitant]
     Active Substance: ASPIRIN
  3. SORIATANE [Suspect]
     Active Substance: ACITRETIN
     Indication: SKIN CANCER
     Dosage: 25 MG, QOD
     Dates: start: 201501
  4. SORIATANE [Suspect]
     Active Substance: ACITRETIN
     Indication: SQUAMOUS CELL CARCINOMA OF SKIN
     Dosage: 25 MG, QOD
     Route: 048
     Dates: start: 20140604, end: 201412
  5. ZOCOR [Concomitant]
     Active Substance: SIMVASTATIN

REACTIONS (15)
  - Hair growth abnormal [Not Recovered/Not Resolved]
  - Madarosis [Not Recovered/Not Resolved]
  - Skin exfoliation [Recovering/Resolving]
  - Muscular weakness [Recovering/Resolving]
  - Chapped lips [Recovering/Resolving]
  - Nail disorder [Recovering/Resolving]
  - Fatigue [Recovering/Resolving]
  - Off label use [Not Recovered/Not Resolved]
  - Asthenia [Recovering/Resolving]
  - Incorrect dose administered [Not Recovered/Not Resolved]
  - Adverse drug reaction [Unknown]
  - Alopecia [Recovering/Resolving]
  - Lip haemorrhage [Recovering/Resolving]
  - Nail growth abnormal [Recovering/Resolving]
  - Onychoclasis [Recovering/Resolving]

NARRATIVE: CASE EVENT DATE: 20140604
